FAERS Safety Report 8604815-5 (Version None)
Quarter: 2012Q3

REPORT INFORMATION
  Report Type: 
  Country: None (occurrence: None)
  Receive Date: 20120820
  Receipt Date: 20120810
  Transmission Date: 20120928
  Serious: Yes (Other)
  Sender: FDA-Public Use
  Company Number: US-JNJFOC-20120609987

PATIENT
  Sex: Female

DRUGS (1)
  1. DURAGESIC-100 [Suspect]
     Indication: PRODUCT USED FOR UNKNOWN INDICATION
     Dosage: 12.5 UG/HR+25 UG/HR
     Route: 062
     Dates: start: 20070101

REACTIONS (6)
  - STRESS [None]
  - MENTAL IMPAIRMENT [None]
  - SINUSITIS [None]
  - NEUROPATHY PERIPHERAL [None]
  - GENERAL PHYSICAL HEALTH DETERIORATION [None]
  - CONFUSIONAL STATE [None]
